FAERS Safety Report 22028847 (Version 1)
Quarter: 2023Q1

REPORT INFORMATION
  Report Type: Report from Study
  Country: IT (occurrence: IT)
  Receive Date: 20230223
  Receipt Date: 20230223
  Transmission Date: 20230418
  Serious: Yes (Hospitalization, Other)
  Sender: FDA-Public Use
  Company Number: None

PATIENT

DRUGS (5)
  1. PEGASPARGASE [Suspect]
     Active Substance: PEGASPARGASE
     Indication: Acute lymphocytic leukaemia recurrent
     Dosage: 1544 UI/DAY
     Route: 042
     Dates: start: 20230123, end: 20230123
  2. METHOTREXATE SODIUM [Suspect]
     Active Substance: METHOTREXATE SODIUM
     Indication: Acute lymphocytic leukaemia recurrent
     Dosage: 154 MG INFUSION IN 30 MIN. + 1390 MG CONTINUOUS INFUSION OVER 25,5 H
     Route: 042
     Dates: start: 20230117, end: 20230118
  3. PURINETHOL [Suspect]
     Active Substance: MERCAPTOPURINE
     Indication: Acute lymphocytic leukaemia recurrent
     Dosage: 140 MG/DAY
     Route: 048
     Dates: start: 20230117, end: 20230120
  4. VINCRISTINE [Suspect]
     Active Substance: VINCRISTINE
     Indication: Acute lymphocytic leukaemia recurrent
     Dosage: 2 MG/DAY ON 17 AND 23/01/23
     Route: 042
     Dates: start: 20230117, end: 20230123
  5. CYTARABINE [Suspect]
     Active Substance: CYTARABINE
     Indication: Acute lymphocytic leukaemia recurrent
     Dosage: 3088 MG X 2 VV/DAY  (IN TOTAL 2 ADMINISTRATIONS)
     Route: 042
     Dates: start: 20230121, end: 20230121

REACTIONS (5)
  - Anaemia [Recovering/Resolving]
  - Hypogammaglobulinaemia [Unknown]
  - Escherichia infection [Recovered/Resolved]
  - Malaise [Unknown]
  - Pancytopenia [Not Recovered/Not Resolved]

NARRATIVE: CASE EVENT DATE: 20230130
